FAERS Safety Report 10037827 (Version 2)
Quarter: 2014Q1

REPORT INFORMATION
  Report Type: Spontaneous
  Country: US (occurrence: US)
  Receive Date: 20140326
  Receipt Date: 20140326
  Transmission Date: 20141002
  Serious: Yes (Hospitalization)
  Sender: FDA-Public Use
  Company Number: US-SA-FABR-1001235

PATIENT
  Age: 58 Year
  Sex: Male
  Weight: 51.93 kg

DRUGS (12)
  1. FABRAZYME [Suspect]
     Indication: FABRY^S DISEASE
     Dosage: 35 MG, EVERY 4 WEEKS
     Route: 042
  2. FABRAZYME [Suspect]
     Indication: FABRY^S DISEASE
     Dosage: 55 MG, Q2W
     Route: 042
     Dates: start: 200503
  3. PROGRAF [Concomitant]
     Dosage: UNK
  4. PREDNISONE [Concomitant]
     Dosage: UNK
  5. VALCYTE [Concomitant]
     Dosage: UNK
  6. FAMOTIDINE [Concomitant]
     Dosage: UNK
  7. CO-TRIMOXAZOLE [Concomitant]
     Dosage: UNK
  8. AMLODIPINE [Concomitant]
     Dosage: UNK
  9. FUROSEMIDE [Concomitant]
     Dosage: UNK
  10. PROCRIT [Concomitant]
     Dosage: UNK
  11. RAPAMUNE [Concomitant]
     Dosage: UNK
  12. MYFORTIC [Concomitant]
     Dosage: UNK

REACTIONS (1)
  - Renal failure chronic [Not Recovered/Not Resolved]
